FAERS Safety Report 6996435-3 (Version None)
Quarter: 2010Q3

REPORT INFORMATION
  Report Type: 
  Country: None (occurrence: None)
  Receive Date: 20100918
  Receipt Date: 20090306
  Transmission Date: 20110219
  Serious: No
  Sender: FDA-Public Use
  Company Number: US-WYE-H08492909

PATIENT
  Sex: Female

DRUGS (3)
  1. EFFEXOR XR [Suspect]
     Indication: DEPRESSION
     Dosage: UNKNOWN
     Route: 048
     Dates: end: 20090101
  2. EFFEXOR XR [Suspect]
     Indication: ANXIETY
     Route: 048
     Dates: start: 20090101
  3. LITHIUM CARBONATE [Concomitant]

REACTIONS (5)
  - DRUG INEFFECTIVE [None]
  - DRUG WITHDRAWAL SYNDROME [None]
  - HYPOAESTHESIA [None]
  - NAUSEA [None]
  - PARAESTHESIA [None]
